FAERS Safety Report 6115607-3 (Version None)
Quarter: 2009Q1

REPORT INFORMATION
  Report Type: 
  Country: None (occurrence: None)
  Receive Date: 20090313
  Receipt Date: 20090310
  Transmission Date: 20090719
  Serious: Yes (Other)
  Sender: FDA-Public Use
  Company Number: US-GENENTECH-275209

PATIENT
  Sex: Female

DRUGS (2)
  1. AVASTIN [Suspect]
     Indication: BREAST CANCER METASTATIC
     Dosage: 420 MG, Q2W
     Route: 042
     Dates: end: 20081209
  2. AVASTIN [Suspect]
     Indication: METASTASES TO LIVER
     Dosage: 420 MG, Q2H
     Route: 042

REACTIONS (3)
  - CATARACT [None]
  - FATIGUE [None]
  - NEUROPATHY PERIPHERAL [None]
